FAERS Safety Report 6887271-7 (Version None)
Quarter: 2010Q3

REPORT INFORMATION
  Report Type: 
  Country: None (occurrence: None)
  Receive Date: 20100730
  Receipt Date: 20100727
  Transmission Date: 20110219
  Serious: Yes (Hospitalization, Other)
  Sender: FDA-Public Use
  Company Number: US-SANOFI-AVENTIS-2010SA044556

PATIENT
  Age: 59 Year
  Sex: Female

DRUGS (4)
  1. PLAVIX [Suspect]
     Route: 048
     Dates: start: 20050101
  2. ASPIRIN [Concomitant]
  3. MICARDIS [Concomitant]
     Indication: HYPERTENSION
  4. LEVOTHYROXINE SODIUM [Concomitant]

REACTIONS (7)
  - CEREBROVASCULAR ACCIDENT [None]
  - HEADACHE [None]
  - INTRACRANIAL ANEURYSM [None]
  - MEMORY IMPAIRMENT [None]
  - OFF LABEL USE [None]
  - SPEECH DISORDER [None]
  - TRANSIENT ISCHAEMIC ATTACK [None]
